FAERS Safety Report 23466032 (Version 1)
Quarter: 2024Q1

REPORT INFORMATION
  Report Type: Spontaneous
  Country: DE (occurrence: DE)
  Receive Date: 20240201
  Receipt Date: 20240201
  Transmission Date: 20240410
  Serious: Yes (Other)
  Sender: FDA-Public Use
  Company Number: DE-TAKEDA-2024TUS007836

PATIENT
  Sex: Female

DRUGS (4)
  1. ENTYVIO [Suspect]
     Active Substance: VEDOLIZUMAB
     Indication: Crohn^s disease
     Dosage: UNK
     Route: 065
  2. AZELAIC ACID [Suspect]
     Active Substance: AZELAIC ACID
     Indication: Product used for unknown indication
     Dosage: UNK
     Route: 065
  3. RINVOQ [Concomitant]
     Active Substance: UPADACITINIB
     Dosage: 45 MILLIGRAM
  4. BUDESONIDE [Concomitant]
     Active Substance: BUDESONIDE
     Dosage: 3 MILLIGRAM

REACTIONS (4)
  - Cholecystectomy [Unknown]
  - Surgery [Unknown]
  - Faeces soft [Unknown]
  - Diarrhoea [Unknown]
